FAERS Safety Report 12819138 (Version 2)
Quarter: 2016Q4

REPORT INFORMATION
  Report Type: Spontaneous
  Country: US (occurrence: US)
  Receive Date: 20161006
  Receipt Date: 20161109
  Transmission Date: 20170207
  Serious: Yes (Other)
  Sender: FDA-Public Use
  Company Number: US-PFIZER INC-2016464940

PATIENT
  Age: 54 Year
  Sex: Male
  Weight: 108 kg

DRUGS (4)
  1. AMILORIDE [Suspect]
     Active Substance: AMILORIDE
     Indication: HYPERTENSION
     Dosage: HIGH DOSE
  2. EPLERENONE. [Suspect]
     Active Substance: EPLERENONE
     Indication: HYPERTENSION
     Dosage: UNK
  3. AMLODIPINE BESILATE [Concomitant]
     Active Substance: AMLODIPINE BESYLATE
     Indication: HYPERTENSION
     Dosage: 10 MG, DAILY
  4. SPIRONOLACTONE. [Suspect]
     Active Substance: SPIRONOLACTONE
     Indication: HYPERTENSION
     Dosage: UNK

REACTIONS (1)
  - Hypokalaemia [Recovered/Resolved]
